FAERS Safety Report 4520918-9 (Version None)
Quarter: 2004Q4

REPORT INFORMATION
  Report Type: 
  Country: None (occurrence: None)
  Receive Date: 20041206
  Receipt Date: 20041206
  Transmission Date: 20050328
  Serious: Yes (Death)
  Sender: FDA-Public Use
  Company Number: None

PATIENT
  Age: 56 Year
  Sex: Female
  Weight: 54.4316 kg

DRUGS (2)
  1. CLINDAMYCIN [Suspect]
     Indication: GINGIVAL SWELLING
     Dosage: 1 TABLET DAY ORAL
     Route: 048
     Dates: start: 20000906, end: 20000910
  2. CLINDAMYCIN [Suspect]
     Indication: INFECTION
     Dosage: 1 TABLET DAY ORAL
     Route: 048
     Dates: start: 20000906, end: 20000910

REACTIONS (1)
  - CLOSTRIDIAL INFECTION [None]
